FAERS Safety Report 8594045-8 (Version None)
Quarter: 2012Q3

REPORT INFORMATION
  Report Type: 
  Country: None (occurrence: None)
  Receive Date: 20120814
  Receipt Date: 20120809
  Transmission Date: 20120928
  Serious: Yes (Other)
  Sender: FDA-Public Use
  Company Number: PHHY2012SE068948

PATIENT
  Sex: Female

DRUGS (3)
  1. BISOPROLOL FUMARATE [Suspect]
     Indication: ATRIAL FIBRILLATION
     Route: 048
     Dates: start: 20120501
  2. BISOPROLOL FUMARATE [Suspect]
     Dosage: 2.5 MG, UNK
     Route: 048
  3. METOPROLOL TARTRATE [Suspect]
     Indication: ATRIAL FIBRILLATION
     Route: 042
     Dates: start: 20120501, end: 20120501

REACTIONS (2)
  - PNEUMONIA [None]
  - BRADYCARDIA [None]
